FAERS Safety Report 24682110 (Version 1)
Quarter: 2024Q4

REPORT INFORMATION
  Report Type: Report from Study
  Country: US (occurrence: US)
  Receive Date: 20241130
  Receipt Date: 20241130
  Transmission Date: 20250114
  Serious: Yes (Other)
  Sender: AUROBINDO
  Company Number: US-AUROBINDO-AUR-APL-2024-057458

PATIENT

DRUGS (1)
  1. AMIODARONE HYDROCHLORIDE [Suspect]
     Active Substance: AMIODARONE HYDROCHLORIDE
     Indication: Junctional ectopic tachycardia
     Dosage: 5 MILLIGRAM/KILOGRAM
     Route: 042

REACTIONS (2)
  - Pulseless electrical activity [Recovering/Resolving]
  - Hypotension [Recovering/Resolving]
